FAERS Safety Report 8145169-0 (Version None)
Quarter: 2012Q1

REPORT INFORMATION
  Report Type: 
  Country: None (occurrence: None)
  Receive Date: 20120217
  Receipt Date: 20120214
  Transmission Date: 20120608
  Serious: Yes (Death, Other)
  Sender: FDA-Public Use
  Company Number: PHHY2011MX95833

PATIENT
  Sex: Female

DRUGS (3)
  1. GLEEVEC [Suspect]
     Indication: BLAST CRISIS IN MYELOGENOUS LEUKAEMIA
     Dosage: 400 MG, DAILY
     Route: 048
     Dates: start: 20110701, end: 20111027
  2. HYDROXYUREA [Concomitant]
     Dosage: 2.5 MG, UNK
  3. ASPIRIN [Concomitant]
     Dosage: 500 MG, UNK

REACTIONS (4)
  - PYREXIA [None]
  - ANAEMIA [None]
  - CARDIO-RESPIRATORY ARREST [None]
  - HEPATOSPLENOMEGALY [None]
